FAERS Safety Report 7225026-4 (Version None)
Quarter: 2011Q1

REPORT INFORMATION
  Report Type: 
  Country: None (occurrence: None)
  Receive Date: 20110113
  Receipt Date: 20101231
  Transmission Date: 20110831
  Serious: No
  Sender: FDA-Public Use
  Company Number: US-B.I. PHARMACEUTICALS,INC./RIDGEFIELD-2011-BP-00425BP

PATIENT
  Sex: Female

DRUGS (7)
  1. CRESTOR [Concomitant]
     Indication: BLOOD CHOLESTEROL INCREASED
  2. JANUMET [Concomitant]
     Indication: DIABETES MELLITUS
  3. DIOVAN [Concomitant]
     Indication: HYPERTENSION
  4. PRADAXA [Suspect]
     Indication: ATRIAL FIBRILLATION
     Dosage: 300 MG
     Route: 048
     Dates: start: 20101228, end: 20101230
  5. LASIX [Concomitant]
  6. TOPROL-XL [Concomitant]
  7. XANAX [Concomitant]

REACTIONS (2)
  - HAEMORRHAGE [None]
  - JOINT SWELLING [None]
